FAERS Safety Report 7001773-4 (Version None)
Quarter: 2010Q3

REPORT INFORMATION
  Report Type: 
  Country: None (occurrence: None)
  Receive Date: 20100920
  Receipt Date: 20071015
  Transmission Date: 20110219
  Serious: Yes (Other)
  Sender: FDA-Public Use
  Company Number: US-ASTRAZENECA-2006UW23564

PATIENT
  Age: 14694 Day
  Sex: Male
  Weight: 68.9 kg

DRUGS (12)
  1. SEROQUEL [Suspect]
     Indication: SCHIZOPHRENIA
     Route: 048
     Dates: start: 19970101, end: 20060101
  2. SEROQUEL [Suspect]
     Indication: DEPRESSION
     Route: 048
     Dates: start: 19970101, end: 20060101
  3. SEROQUEL [Suspect]
     Dosage: 50-600 MG
     Route: 048
     Dates: start: 20000731
  4. SEROQUEL [Suspect]
     Dosage: 50-600 MG
     Route: 048
     Dates: start: 20000731
  5. HALDOL [Concomitant]
     Dates: start: 19960101
  6. RISPERDAL [Concomitant]
  7. PROZAC [Concomitant]
     Route: 048
     Dates: start: 20000731
  8. BENADRYL [Concomitant]
     Route: 048
     Dates: start: 20000731
  9. TENORMIN [Concomitant]
     Dosage: 25-50 MG
     Route: 048
     Dates: start: 20020712
  10. CATAPRES [Concomitant]
     Route: 048
     Dates: start: 20031230
  11. ATIVAN [Concomitant]
     Indication: AGITATION
     Route: 048
     Dates: start: 20031230
  12. PROLIXIN [Concomitant]
     Route: 048
     Dates: start: 20001117

REACTIONS (7)
  - DIABETES MELLITUS [None]
  - DIABETES MELLITUS INADEQUATE CONTROL [None]
  - DRUG HYPERSENSITIVITY [None]
  - HYPERGLYCAEMIA [None]
  - INSULIN-REQUIRING TYPE 2 DIABETES MELLITUS [None]
  - TYPE 1 DIABETES MELLITUS [None]
  - TYPE 2 DIABETES MELLITUS [None]
